FAERS Safety Report 13444403 (Version 3)
Quarter: 2017Q4

REPORT INFORMATION
  Report Type: Report from Study
  Country: AR (occurrence: AR)
  Receive Date: 20170414
  Receipt Date: 20171204
  Transmission Date: 20180320
  Serious: Yes (Death, Hospitalization)
  Sender: FDA-Public Use
  Company Number: PHHY2017AR019641

PATIENT
  Sex: Male

DRUGS (2)
  1. COSENTYX [Suspect]
     Active Substance: SECUKINUMAB
     Indication: ANKYLOSING SPONDYLITIS
     Dosage: 150 MG, QMO
     Route: 065
  2. COSENTYX [Suspect]
     Active Substance: SECUKINUMAB
     Dosage: 150 MG, UNK
     Route: 065

REACTIONS (15)
  - Diarrhoea [Fatal]
  - Renal disorder [Unknown]
  - Pain [Unknown]
  - Hypoalbuminaemia [Unknown]
  - Gastrointestinal disorder [Fatal]
  - Dehydration [Fatal]
  - Intestinal perforation [Fatal]
  - Malnutrition [Unknown]
  - Hypophagia [Fatal]
  - Haemodynamic instability [Fatal]
  - Crohn^s disease [Fatal]
  - Acute abdomen [Unknown]
  - Gastrointestinal wall thickening [Unknown]
  - Malaise [Unknown]
  - Abdominal pain [Unknown]
